FAERS Safety Report 9925580 (Version 1)
Quarter: 2014Q1

REPORT INFORMATION
  Report Type: Spontaneous
  Country: US (occurrence: None)
  Receive Date: 20140221
  Receipt Date: 20140221
  Transmission Date: 20141002
  Serious: Yes (Hospitalization)
  Sender: FDA-Public Use
  Company Number: SYM-2014-17304

PATIENT
  Sex: Male

DRUGS (3)
  1. XENAZINE [Suspect]
     Indication: CEREBRAL PALSY
     Route: 048
     Dates: start: 20130731
  2. XENAZINE [Suspect]
     Indication: DYSKINESIA
     Route: 048
     Dates: start: 20130731
  3. XENAZINE [Suspect]
     Indication: OFF LABEL USE
     Route: 048
     Dates: start: 20130731

REACTIONS (2)
  - Muscle spasms [None]
  - Dyspnoea [None]
